FAERS Safety Report 4625650-9 (Version None)
Quarter: 2005Q1

REPORT INFORMATION
  Report Type: 
  Country: None (occurrence: None)
  Receive Date: 20050330
  Receipt Date: 20050310
  Transmission Date: 20050727
  Serious: Yes (Other)
  Sender: FDA-Public Use
  Company Number: FR_050306010

PATIENT
  Age: 69 Year
  Sex: Male
  Weight: 65 kg

DRUGS (6)
  1. GEMZAR [Suspect]
     Indication: NON-SMALL CELL LUNG CANCER
     Dates: start: 20040301, end: 20040601
  2. CISPLATIN [Concomitant]
  3. TAXOTERE [Concomitant]
  4. RADIATION THERAPY [Concomitant]
  5. ZOLEDRONIC ACID [Concomitant]
  6. PREDNISOLONE [Concomitant]

REACTIONS (6)
  - FUNGAL INFECTION [None]
  - GINGIVAL INFECTION [None]
  - HILAR LYMPHADENOPATHY [None]
  - JAW DISORDER [None]
  - MALIGNANT NEOPLASM PROGRESSION [None]
  - OSTEONECROSIS [None]
